FAERS Safety Report 18445112 (Version 1)
Quarter: 2020Q4

REPORT INFORMATION
  Report Type: Report from Study
  Country: None (occurrence: AU)
  Receive Date: 20201030
  Receipt Date: 20201030
  Transmission Date: 20210114
  Serious: Yes (Other)
  Sender: FDA-Public Use
  Company Number: AU-ABBVIE-20K-008-3631757-00

PATIENT
  Sex: Female

DRUGS (1)
  1. IMBRUVICA [Suspect]
     Active Substance: IBRUTINIB
     Indication: CHRONIC LYMPHOCYTIC LEUKAEMIA
     Route: 048
     Dates: start: 20190827

REACTIONS (6)
  - Asthma [Not Recovered/Not Resolved]
  - Incorrect dose administered [Unknown]
  - Bronchiectasis [Not Recovered/Not Resolved]
  - Tooth disorder [Recovered/Resolved]
  - Off label use [Unknown]
  - Malaise [Recovered/Resolved]
